FAERS Safety Report 12267555 (Version 2)
Quarter: 2016Q2

REPORT INFORMATION
  Report Type: Spontaneous
  Country: US (occurrence: US)
  Receive Date: 20160414
  Receipt Date: 20160418
  Transmission Date: 20160815
  Serious: No
  Sender: FDA-Public Use
  Company Number: PHEH2016US009187

PATIENT
  Age: 49 Year
  Sex: Female
  Weight: 56.2 kg

DRUGS (1)
  1. TYKERB [Suspect]
     Active Substance: LAPATINIB DITOSYLATE
     Indication: NEOPLASM MALIGNANT
     Dosage: 250 MG, QD
     Route: 048
     Dates: start: 20160411

REACTIONS (2)
  - Gastrointestinal disorder [Unknown]
  - Medication error [Unknown]

NARRATIVE: CASE EVENT DATE: 20160411
